FAERS Safety Report 5297088-5 (Version None)
Quarter: 2007Q1

REPORT INFORMATION
  Report Type: 
  Country: None (occurrence: None)
  Receive Date: 20070201
  Receipt Date: 20061003
  Transmission Date: 20070707
  Serious: No
  Sender: FDA-Public Use
  Company Number: 2006PV022424

PATIENT
  Age: 68 Year
  Sex: Male
  Weight: 96.1626 kg

DRUGS (7)
  1. BYETTA [Suspect]
     Indication: DIABETES MELLITUS NON-INSULIN-DEPENDENT
     Dosage: SEE IMAGE
     Route: 058
     Dates: start: 20060601, end: 20060801
  2. BYETTA [Suspect]
     Indication: DIABETES MELLITUS NON-INSULIN-DEPENDENT
     Dosage: SEE IMAGE
     Route: 058
     Dates: start: 20060801
  3. METFORMIN HCL [Concomitant]
  4. GLYBURIDE [Concomitant]
  5. AVANDIA [Concomitant]
  6. FOLIC ACID [Concomitant]
  7. CRESTOR [Concomitant]

REACTIONS (4)
  - DECREASED APPETITE [None]
  - INJECTION SITE BRUISING [None]
  - NAUSEA [None]
  - WEIGHT DECREASED [None]
